FAERS Safety Report 7205407-5 (Version None)
Quarter: 2010Q4

REPORT INFORMATION
  Report Type: 
  Country: None (occurrence: None)
  Receive Date: 20101231
  Receipt Date: 20101229
  Transmission Date: 20110411
  Serious: Yes (Hospitalization, Disabling)
  Sender: FDA-Public Use
  Company Number: CA-PFIZER INC-2010119480

PATIENT
  Age: 83 Year
  Sex: Female

DRUGS (8)
  1. SUTENT [Suspect]
     Indication: METASTATIC RENAL CELL CARCINOMA
     Dosage: 50 MG, 1X/DAY
     Route: 048
     Dates: start: 20100801
  2. GLUCOSAMINE [Concomitant]
     Dosage: UNK
  3. VITAMIN D [Concomitant]
     Dosage: 1000 IU, UNK
  4. CELEBREX [Concomitant]
     Indication: ARTHRITIS
     Dosage: 200 MG, 1X/DAY
  5. HYDROCHLOROTHIAZIDE [Concomitant]
     Indication: BLOOD PRESSURE
     Dosage: 25 MG, UNK
  6. DILTIAZEM CD [Concomitant]
     Indication: BLOOD PRESSURE
     Dosage: 240 MG, UNK
  7. PARIET [Concomitant]
     Indication: OESOPHAGITIS
     Dosage: 20 MG, UNK
  8. CANDESARTAN [Concomitant]
     Indication: BLOOD PRESSURE
     Dosage: 32 MG, UNK

REACTIONS (4)
  - CONFUSIONAL STATE [None]
  - HEPATOTOXICITY [None]
  - JAUNDICE [None]
  - THROMBOCYTOPENIA [None]
